FAERS Safety Report 5474444-3 (Version None)
Quarter: 2007Q4

REPORT INFORMATION
  Report Type: 
  Country: None (occurrence: None)
  Receive Date: 20071002
  Receipt Date: 20070926
  Transmission Date: 20080405
  Serious: Yes (Other)
  Sender: FDA-Public Use
  Company Number: US-BRISTOL-MYERS SQUIBB COMPANY-13918263

PATIENT
  Age: 14 Year
  Sex: Female

DRUGS (7)
  1. METHOTREXATE [Interacting]
     Indication: BONE SARCOMA
     Dosage: 12G/M2 OVER 4 HRS
     Route: 042
  2. CISPLATIN [Interacting]
     Indication: BONE SARCOMA
  3. DOXORUBICIN HCL [Interacting]
     Indication: BONE SARCOMA
  4. LEUCOVORIN CALCIUM [Suspect]
  5. IFOSFAMIDE [Suspect]
  6. IODINIZED CONTRAST MEDIA [Interacting]
  7. CARBOXYPEPTIDASE G2 [Suspect]

REACTIONS (14)
  - ABDOMINAL MASS [None]
  - BLOOD CREATININE INCREASED [None]
  - DRUG INTERACTION [None]
  - HEPATIC ENZYME INCREASED [None]
  - HERPES SIMPLEX [None]
  - HYPERTENSION [None]
  - HYPOTENSION [None]
  - LUNG INFILTRATION [None]
  - MUCOSAL INFLAMMATION [None]
  - NEUTROPENIA [None]
  - PANCREATITIS [None]
  - PYREXIA [None]
  - RENAL FAILURE [None]
  - VOMITING [None]
